FAERS Safety Report 11448401 (Version 1)
Quarter: 2015Q3

REPORT INFORMATION
  Report Type: Spontaneous
  Country: US (occurrence: US)
  Receive Date: 20150831
  Receipt Date: 20150831
  Transmission Date: 20151125
  Serious: No
  Sender: FDA-Public Use
  Company Number: US-ELI_LILLY_AND_COMPANY-US200907001610

PATIENT
  Sex: Male

DRUGS (1)
  1. CYMBALTA [Suspect]
     Active Substance: DULOXETINE HYDROCHLORIDE
     Indication: CRANIAL NERVE DISORDER

REACTIONS (5)
  - Pain [Unknown]
  - Off label use [Unknown]
  - Musculoskeletal pain [Unknown]
  - Myalgia [Unknown]
  - Ear pain [Unknown]
